FAERS Safety Report 7989172-X (Version None)
Quarter: 2011Q4

REPORT INFORMATION
  Report Type: 
  Country: None (occurrence: None)
  Receive Date: 20111219
  Receipt Date: 20111212
  Transmission Date: 20120403
  Serious: Yes (Other)
  Sender: FDA-Public Use
  Company Number: US-TEVA-313289USA

PATIENT
  Age: 43 Year
  Sex: Male

DRUGS (6)
  1. FLUVOXAMINE MALEATE [Interacting]
     Indication: PANIC DISORDER
  2. FLUVOXAMINE MALEATE [Interacting]
     Indication: GENERALISED ANXIETY DISORDER
  3. FLUCONAZOLE [Suspect]
  4. FLUVOXAMINE MALEATE [Interacting]
     Indication: BIPOLAR DISORDER
  5. ARSENIC TRIOXIDE [Interacting]
     Route: 042
     Dates: start: 20110929
  6. FLUVOXAMINE MALEATE [Interacting]
     Indication: OBSESSIVE-COMPULSIVE DISORDER
     Dosage: 100 MILLIGRAM;

REACTIONS (7)
  - HYPERHIDROSIS [None]
  - DRUG INTERACTION [None]
  - WITHDRAWAL SYNDROME [None]
  - TREMOR [None]
  - CHILLS [None]
  - ELECTROCARDIOGRAM QT PROLONGED [None]
  - ANXIETY [None]
